FAERS Safety Report 4678684-2 (Version None)
Quarter: 2005Q2

REPORT INFORMATION
  Report Type: 
  Country: None (occurrence: None)
  Receive Date: 20050527
  Receipt Date: 20050404
  Transmission Date: 20051028
  Serious: Yes (Other)
  Sender: FDA-Public Use
  Company Number: 2005009787

PATIENT
  Age: 71 Year
  Sex: Female

DRUGS (4)
  1. BEXTRA [Suspect]
     Indication: OSTEOARTHRITIS
     Dosage: 10 MG (10 MG, 1 IN 1 D), ORAL
     Route: 048
     Dates: start: 20041019, end: 20041026
  2. DIOVAN HCT [Suspect]
     Indication: BLOOD PRESSURE
     Dates: start: 20040922, end: 20041026
  3. HYALGAN (HYALURONIC ACID) [Suspect]
     Indication: ARTHROPATHY
  4. SYNTHROID [Concomitant]

REACTIONS (10)
  - BLOOD PRESSURE INADEQUATELY CONTROLLED [None]
  - CONFUSIONAL STATE [None]
  - CONJUNCTIVAL HYPERAEMIA [None]
  - CRYING [None]
  - DECREASED APPETITE [None]
  - DRUG ERUPTION [None]
  - ECZEMA [None]
  - EMOTIONAL DISTRESS [None]
  - FEELING HOT [None]
  - URTICARIA [None]
